FAERS Safety Report 23076880 (Version 1)
Quarter: 2023Q4

REPORT INFORMATION
  Report Type: Spontaneous
  Country: CN (occurrence: CN)
  Receive Date: 20231018
  Receipt Date: 20231018
  Transmission Date: 20240109
  Serious: Yes (Death, Other)
  Sender: FDA-Public Use
  Company Number: CN-SANDOZ-SDZ2023CN009392

PATIENT
  Age: 42 Year
  Sex: Male

DRUGS (4)
  1. CARBOPLATIN [Suspect]
     Active Substance: CARBOPLATIN
     Indication: Chemotherapy
     Dosage: UNK
     Route: 065
     Dates: start: 20210417
  2. DOCETAXEL [Suspect]
     Active Substance: DOCETAXEL
     Indication: Chemotherapy
     Dosage: UNK (1 CYCLE)
     Route: 065
     Dates: start: 201904
  3. GEMCITABINE [Suspect]
     Active Substance: GEMCITABINE
     Indication: Chemotherapy
     Dosage: UNK
     Route: 065
     Dates: start: 20210417
  4. SINTILIMAB [Suspect]
     Active Substance: SINTILIMAB
     Indication: Product used for unknown indication
     Dosage: UNK
     Route: 065
     Dates: start: 20210417

REACTIONS (1)
  - Immune-mediated myocarditis [Fatal]

NARRATIVE: CASE EVENT DATE: 20210506
